FAERS Safety Report 25446070 (Version 2)
Quarter: 2025Q2

REPORT INFORMATION
  Report Type: Spontaneous
  Country: US (occurrence: US)
  Receive Date: 20250617
  Receipt Date: 20250620
  Transmission Date: 20250716
  Serious: No
  Sender: PFIZER
  Company Number: US-PFIZER INC-PV202400094343

PATIENT
  Age: 77 Year
  Sex: Female

DRUGS (3)
  1. TUKYSA [Suspect]
     Active Substance: TUCATINIB
     Indication: Breast cancer metastatic
     Dosage: 100 MG, 2X/DAY
  2. TUKYSA [Suspect]
     Active Substance: TUCATINIB
     Dosage: 250 MG, DAILY (100 MG IN THE MORNING, 150 MG IN THE EVENING)
  3. TUKYSA [Suspect]
     Active Substance: TUCATINIB
     Dosage: 250 MG, DAILY (TWO TABLETS IN THE MORNING AND THREE TABLETS IN THE EVENING)

REACTIONS (4)
  - Constipation [Unknown]
  - Fatigue [Unknown]
  - Decreased appetite [Unknown]
  - Off label use [Unknown]
